FAERS Safety Report 21239424 (Version 1)
Quarter: 2022Q3

REPORT INFORMATION
  Report Type: Spontaneous
  Country: CN (occurrence: CN)
  Receive Date: 20220822
  Receipt Date: 20220822
  Transmission Date: 20221026
  Serious: Yes (Hospitalization, Other)
  Sender: FDA-Public Use
  Company Number: None

PATIENT
  Age: 3 Year
  Sex: Female
  Weight: 11.5 kg

DRUGS (6)
  1. CYCLOPHOSPHAMIDE [Suspect]
     Active Substance: CYCLOPHOSPHAMIDE
     Indication: Leukaemia
     Dosage: 0.5 G,QD, INTRAPUMP INJECTION, DILUTED WITH SODIUM CHLORIDE, SECOND EARLY INTENSIVE CAML CHEMOTHERAP
     Route: 050
     Dates: start: 20220726, end: 20220726
  2. SODIUM CHLORIDE [Suspect]
     Active Substance: SODIUM CHLORIDE
     Indication: Medication dilution
     Dosage: 100 ML, QD, INTRAPUMP INJECTION, DILUTED IN CYCLOPHOSPHAMIDE, SECOND EARLY INTENSIVE CAML CHEMOTHERA
     Route: 050
     Dates: start: 20220726, end: 20220726
  3. CYTARABINE HYDROCHLORIDE [Suspect]
     Active Substance: CYTARABINE HYDROCHLORIDE
     Indication: Leukaemia
     Dosage: 50 MG, QD, INTRA-PUMP INJECTION, DILUTED WITH GLUCOSE
     Route: 050
     Dates: start: 20220728, end: 20220801
  4. DEXTROSE [Suspect]
     Active Substance: DEXTROSE
     Indication: Medication dilution
     Dosage: 100 ML, QD, INTRA-PUMP INJECTION, DILUTED IN CYTARABINE HYDROCHLORIDE, SECOND EARLY INTENSIVE CAML C
     Route: 050
     Dates: start: 20220728, end: 20220801
  5. PEGASPARGASE [Suspect]
     Active Substance: PEGASPARGASE
     Indication: Leukaemia
     Dosage: 1100 IU, QD, SECOND EARLY INTENSIVE CAML CHEMOTHERAPY
     Route: 030
     Dates: start: 20220727, end: 20220727
  6. MERCAPTOPURINE [Suspect]
     Active Substance: MERCAPTOPURINE
     Indication: Leukaemia
     Dosage: 35 MG, QD, SECOND EARLY INTENSIVE CAML CHEMOTHERAPY
     Route: 048
     Dates: start: 20220726, end: 20220808

REACTIONS (5)
  - Prothrombin time prolonged [Unknown]
  - Anaemia [Unknown]
  - Agranulocytosis [Unknown]
  - Thrombocytopenia [Unknown]
  - Myelosuppression [Unknown]

NARRATIVE: CASE EVENT DATE: 20220803
